FAERS Safety Report 5271273-0 (Version None)
Quarter: 2007Q1

REPORT INFORMATION
  Report Type: 
  Country: None (occurrence: None)
  Receive Date: 20061214
  Receipt Date: 20060526
  Transmission Date: 20070707
  Serious: Yes (Hospitalization)
  Sender: FDA-Public Use
  Company Number: 2006071158

PATIENT
  Age: 57 Year
  Sex: Female

DRUGS (1)
  1. BEXTRA [Suspect]
     Indication: BACK PAIN
     Dosage: 20 MG (10 MG,2 IN 1 D)

REACTIONS (2)
  - CHEST PAIN [None]
  - MYOCARDIAL INFARCTION [None]
